FAERS Safety Report 23412630 (Version 2)
Quarter: 2024Q3

REPORT INFORMATION
  Report Type: Spontaneous
  Country: US (occurrence: US)
  Receive Date: 20240117
  Receipt Date: 20240716
  Transmission Date: 20241016
  Serious: No
  Sender: NOVO NORDISK
  Company Number: US-NOVOPROD-1100458

PATIENT
  Sex: Male

DRUGS (1)
  1. OZEMPIC [Suspect]
     Active Substance: SEMAGLUTIDE
     Indication: Product used for unknown indication
     Dosage: 0.25 MG
     Route: 058

REACTIONS (6)
  - Illness [Unknown]
  - Headache [Recovered/Resolved]
  - Injection site haemorrhage [Unknown]
  - Constipation [Unknown]
  - Dyspepsia [Unknown]
  - Drug ineffective [Unknown]
